FAERS Safety Report 15601577 (Version 1)
Quarter: 2018Q4

REPORT INFORMATION
  Report Type: Spontaneous
  Country: US (occurrence: US)
  Receive Date: 20181109
  Receipt Date: 20181109
  Transmission Date: 20190205
  Serious: Yes (Other)
  Sender: FDA-Public Use
  Company Number: None

PATIENT
  Age: 60 Year
  Sex: Male

DRUGS (3)
  1. TOCILIZUMAB. [Suspect]
     Active Substance: TOCILIZUMAB
     Dates: start: 20181108
  2. TOCILIZUMAB 20MG/ML [Concomitant]
     Dates: start: 20181108
  3. NORMAL SALINE 0.9% 250MG [Concomitant]
     Dates: start: 20181108

REACTIONS (4)
  - Chest discomfort [None]
  - Dyspnoea [None]
  - Flushing [None]
  - Infusion related reaction [None]

NARRATIVE: CASE EVENT DATE: 20181108
